FAERS Safety Report 14303192 (Version 1)
Quarter: 2017Q4

REPORT INFORMATION
  Report Type: Spontaneous
  Country: US (occurrence: US)
  Receive Date: 20171219
  Receipt Date: 20171219
  Transmission Date: 20180321
  Serious: Yes (Other)
  Sender: FDA-Public Use
  Company Number: US-TEVA-2017-US-833080

PATIENT
  Age: 56 Year
  Sex: Female
  Weight: 57 kg

DRUGS (3)
  1. LIOTHYRONINE [Concomitant]
     Active Substance: LIOTHYRONINE
     Route: 065
  2. PROAIR RESPICLICK [Suspect]
     Active Substance: ALBUTEROL SULFATE
     Indication: PULMONARY FUNCTION TEST
     Route: 065
  3. LEVOTHYROXINE. [Concomitant]
     Active Substance: LEVOTHYROXINE
     Indication: HYPOTHYROIDISM
     Route: 065

REACTIONS (10)
  - Dizziness [Recovered/Resolved]
  - Feeling abnormal [Recovered/Resolved]
  - Muscle twitching [Not Recovered/Not Resolved]
  - Speech disorder [Recovered/Resolved]
  - Lacrimation increased [Recovered/Resolved]
  - Dysstasia [Recovered/Resolved]
  - Seizure [Recovered/Resolved]
  - Heart rate increased [Not Recovered/Not Resolved]
  - Muscular weakness [Recovered/Resolved]
  - Bradyphrenia [Recovered/Resolved]
